FAERS Safety Report 12336683 (Version 3)
Quarter: 2016Q4

REPORT INFORMATION
  Report Type: Report from Study
  Country: US (occurrence: US)
  Receive Date: 20160505
  Receipt Date: 20161215
  Transmission Date: 20170207
  Serious: Yes (Hospitalization, Other)
  Sender: FDA-Public Use
  Company Number: US-SA-2016SA086553

PATIENT
  Age: 54 Year
  Sex: Male

DRUGS (3)
  1. FABRAZYME [Suspect]
     Active Substance: AGALSIDASE BETA
     Indication: FABRY^S DISEASE
     Route: 041
     Dates: start: 20110228, end: 20160126
  2. FABRAZYME [Suspect]
     Active Substance: AGALSIDASE BETA
     Indication: FABRY^S DISEASE
     Dosage: DOSE: 1.00?FREQUENCY: Q2
     Route: 041
  3. FABRAZYME [Suspect]
     Active Substance: AGALSIDASE BETA
     Indication: FABRY^S DISEASE
     Route: 041
     Dates: start: 20110228, end: 20160126

REACTIONS (6)
  - Hospitalisation [Not Recovered/Not Resolved]
  - Dementia [Not Recovered/Not Resolved]
  - Seizure [Not Recovered/Not Resolved]
  - Tremor [Not Recovered/Not Resolved]
  - Cerebrovascular accident [Not Recovered/Not Resolved]
  - Hip fracture [Unknown]

NARRATIVE: CASE EVENT DATE: 201604
